FAERS Safety Report 5463883-2 (Version None)
Quarter: 2007Q3

REPORT INFORMATION
  Report Type: 
  Country: None (occurrence: None)
  Receive Date: 20070427
  Receipt Date: 20061120
  Transmission Date: 20080115
  Serious: Yes (Life-Threatening)
  Sender: FDA-Public Use
  Company Number: 200610373BBE

PATIENT
  Age: 69 Year
  Sex: Female
  Weight: 50.3493 kg

DRUGS (11)
  1. IMMUNE GLOBULIN INTRAVENOUS (HUMAN) [Suspect]
     Indication: COMBINED IMMUNODEFICIENCY
     Dosage: 25 ML; 1X; IV
     Route: 042
     Dates: start: 20061110, end: 20061110
  2. FLONASE [Concomitant]
  3. SPIRIVA [Concomitant]
  4. NEXIUM [Concomitant]
  5. VITAMIN B12 NOS [Concomitant]
  6. PHENERGAN [Concomitant]
  7. AMBIEN [Concomitant]
  8. LORCET-HD [Concomitant]
  9. PREMARIN [Concomitant]
  10. DHEA [Concomitant]
  11. COMBIVENT [IPRATROPIUM BROMIDE, SALBUTAMOL] [Concomitant]

REACTIONS (5)
  - ANAPHYLACTIC REACTION [None]
  - FLUSHING [None]
  - HYPOTENSION [None]
  - TACHYCARDIA [None]
  - WHEEZING [None]
